FAERS Safety Report 23244869 (Version 1)
Quarter: 2023Q4

REPORT INFORMATION
  Report Type: Spontaneous
  Country: None (occurrence: US)
  Receive Date: 20231130
  Receipt Date: 20231130
  Transmission Date: 20240110
  Serious: No
  Sender: FDA-Public Use
  Company Number: US-Mission Pharmacal Company-2148828

PATIENT
  Age: 40 Year
  Sex: Male

DRUGS (1)
  1. THIOLA EC [Suspect]
     Active Substance: TIOPRONIN
     Indication: Amino acid metabolism disorder
     Route: 048
     Dates: start: 20231124

REACTIONS (2)
  - Muscle spasms [Unknown]
  - Myalgia [Unknown]
